FAERS Safety Report 17065621 (Version 1)
Quarter: 2019Q4

REPORT INFORMATION
  Report Type: Spontaneous
  Country: DE (occurrence: DE)
  Receive Date: 20191122
  Receipt Date: 20191122
  Transmission Date: 20200122
  Serious: Yes (Disabling)
  Sender: FDA-Public Use
  Company Number: None

PATIENT
  Age: 25 Year
  Sex: Male
  Weight: 82 kg

DRUGS (1)
  1. FINSTER [Suspect]
     Active Substance: FINASTERIDE
     Indication: ANDROGENETIC ALOPECIA
     Dosage: ?          QUANTITY:1.25 1.25 MG DAILY;?
     Route: 048
     Dates: start: 20150101, end: 20150401

REACTIONS (25)
  - Libido decreased [None]
  - Organic erectile dysfunction [None]
  - Ejaculation failure [None]
  - Fat redistribution [None]
  - Autoimmune thyroiditis [None]
  - Influenza [None]
  - Dry skin [None]
  - Liver injury [None]
  - Blood glucose increased [None]
  - Anxiety [None]
  - Memory impairment [None]
  - Asthenia [None]
  - Weight loss poor [None]
  - Male reproductive tract disorder [None]
  - Anhedonia [None]
  - Apathy [None]
  - Hypoaesthesia [None]
  - Erectile dysfunction [None]
  - Orgasmic sensation decreased [None]
  - Semen viscosity abnormal [None]
  - Gynaecomastia [None]
  - Unevaluable event [None]
  - Genital atrophy [None]
  - Depressed mood [None]
  - Nasopharyngitis [None]

NARRATIVE: CASE EVENT DATE: 20150401
